FAERS Safety Report 5679188-0 (Version None)
Quarter: 2008Q1

REPORT INFORMATION
  Report Type: 
  Country: None (occurrence: None)
  Receive Date: 20080321
  Receipt Date: 20080310
  Transmission Date: 20080703
  Serious: Yes (Hospitalization)
  Sender: FDA-Public Use
  Company Number: DSM-2008-00285

PATIENT
  Age: 69 Year
  Sex: Male

DRUGS (1)
  1. VOTUM PLUS       (HYDROCHLOROTHIAZIDE, OLMESARTAN MEDOXOMIL) [Suspect]
     Indication: ESSENTIAL HYPERTENSION
     Dosage: 20/12.5MG (1 IN 1D),ORAL
     Route: 048
     Dates: start: 20071108, end: 20071210

REACTIONS (1)
  - ERYSIPELAS [None]
